FAERS Safety Report 18554472 (Version 1)
Quarter: 2020Q4

REPORT INFORMATION
  Report Type: Spontaneous
  Country: US (occurrence: US)
  Receive Date: 20201127
  Receipt Date: 20201127
  Transmission Date: 20210114
  Serious: No
  Sender: FDA-Public Use
  Company Number: US-009507513-2011USA012969

PATIENT
  Age: 61 Year
  Sex: Female

DRUGS (17)
  1. BENADRYL [Suspect]
     Active Substance: DIPHENHYDRAMINE HYDROCHLORIDE
     Indication: PRURITUS
     Dosage: UNK
     Dates: start: 2020
  2. ALOE VERA [Suspect]
     Active Substance: ALOE VERA LEAF
     Indication: PRURITUS
     Dosage: UNK
     Dates: start: 2020
  3. SEROQUEL [Concomitant]
     Active Substance: QUETIAPINE FUMARATE
  4. OXYCODONE [Concomitant]
     Active Substance: OXYCODONE
  5. PNEUMOVAX 23 [Suspect]
     Active Substance: PNEUMOCOCCAL VACCINE, POLYVALENT 23
     Indication: PROPHYLAXIS
     Route: 030
     Dates: start: 20201019
  6. PREDNISONE. [Suspect]
     Active Substance: PREDNISONE
     Indication: PRURITUS
     Dosage: UNK
     Dates: start: 2020
  7. HYDROXYZINE [Suspect]
     Active Substance: HYDROXYZINE HYDROCHLORIDE
     Indication: PRURITUS
     Dosage: UNK
     Dates: start: 2020
  8. ESTROGEN NOS [Concomitant]
     Active Substance: ESTROGENS
     Route: 061
  9. CLONOPIN [Concomitant]
     Active Substance: CLONAZEPAM
  10. CORTISONE [Suspect]
     Active Substance: CORTISONE
     Indication: PRURITUS
     Dosage: UNK
     Dates: start: 2020
  11. PERMETHRIN. [Suspect]
     Active Substance: PERMETHRIN
     Indication: PRURITUS
     Dosage: UNK
     Dates: start: 2020
  12. SOMA [Concomitant]
     Active Substance: CARISOPRODOL
  13. PROGESTERONE. [Concomitant]
     Active Substance: PROGESTERONE
  14. ACYCLOVIR. [Concomitant]
     Active Substance: ACYCLOVIR
  15. FENTANYL. [Concomitant]
     Active Substance: FENTANYL
  16. SINGULAIR [Suspect]
     Active Substance: MONTELUKAST SODIUM
     Indication: PRURITUS
     Dosage: UNK
     Dates: start: 2020
  17. CLOBETASOL PROPIONATE. [Suspect]
     Active Substance: CLOBETASOL PROPIONATE
     Indication: PRURITUS
     Dosage: UNK
     Dates: start: 2020

REACTIONS (11)
  - Skin haemorrhage [Unknown]
  - Pruritus [Recovering/Resolving]
  - Scratch [Unknown]
  - Drug ineffective [Unknown]
  - Urinary tract infection [Unknown]
  - Toxicity to various agents [Unknown]
  - Ill-defined disorder [Unknown]
  - Erythema [Unknown]
  - Product use in unapproved indication [Unknown]
  - Mass [Unknown]
  - Vulvovaginal pruritus [Recovering/Resolving]

NARRATIVE: CASE EVENT DATE: 2020
